FAERS Safety Report 14102633 (Version 1)
Quarter: 2017Q4

REPORT INFORMATION
  Report Type: Spontaneous
  Country: US (occurrence: US)
  Receive Date: 20171018
  Receipt Date: 20171018
  Transmission Date: 20180321
  Serious: No
  Sender: FDA-Public Use
  Company Number: US-ENDO PHARMACEUTICALS INC-2017-001286

PATIENT
  Age: 81 Year
  Sex: Male
  Weight: 90.7 kg

DRUGS (3)
  1. VALSTAR [Suspect]
     Active Substance: VALRUBICIN
     Indication: BLADDER CANCER STAGE 0, WITH CANCER IN SITU
     Dosage: FIRST INSTILLATION IN THE BLADDER
     Route: 043
     Dates: start: 20170308
  2. COZAAR [Concomitant]
     Active Substance: LOSARTAN POTASSIUM
     Indication: HYPERTENSION
  3. LIPITOR [Concomitant]
     Active Substance: ATORVASTATIN CALCIUM
     Indication: BLOOD CHOLESTEROL INCREASED

REACTIONS (5)
  - Bladder spasm [Recovered/Resolved]
  - Urge incontinence [Recovered/Resolved]
  - Underdose [Recovered/Resolved]
  - Wrong technique in product usage process [Recovered/Resolved]
  - Bladder instillation procedure [Recovered/Resolved]

NARRATIVE: CASE EVENT DATE: 20170308
